FAERS Safety Report 15461718 (Version 1)
Quarter: 2018Q4

REPORT INFORMATION
  Report Type: Spontaneous
  Country: US (occurrence: US)
  Receive Date: 20181003
  Receipt Date: 20181003
  Transmission Date: 20190204
  Serious: No
  Sender: FDA-Public Use
  Company Number: US-AMGEN-USASP2018027523

PATIENT
  Sex: Male
  Weight: 100 kg

DRUGS (6)
  1. VECTIBIX [Suspect]
     Active Substance: PANITUMUMAB
     Dosage: 600 MG, UNK (100 MG)
     Route: 042
  2. VECTIBIX [Suspect]
     Active Substance: PANITUMUMAB
     Indication: COLON CANCER
     Dosage: 600 MG, UNK (100 MG)
     Route: 042
     Dates: start: 20170918
  3. IRINOTECAN [Concomitant]
     Active Substance: IRINOTECAN
     Dosage: 360 MG, UNK (D5W)
     Route: 042
     Dates: start: 20170918
  4. DECADRON [Concomitant]
     Active Substance: DEXAMETHASONE
     Dosage: 10 MG, UNK
  5. VECTIBIX [Suspect]
     Active Substance: PANITUMUMAB
     Dosage: 600 MG, UNK (400 MG)
     Route: 042
     Dates: start: 20180108
  6. ZOFRAN [Concomitant]
     Active Substance: ONDANSETRON HYDROCHLORIDE
     Dosage: 16 MG, UNK

REACTIONS (1)
  - Blood magnesium decreased [Not Recovered/Not Resolved]

NARRATIVE: CASE EVENT DATE: 2017
